FAERS Safety Report 4745723-X (Version None)
Quarter: 2005Q3

REPORT INFORMATION
  Report Type: 
  Country: None (occurrence: None)
  Receive Date: 20050811
  Receipt Date: 20050803
  Transmission Date: 20060218
  Serious: Yes (Life-Threatening)
  Sender: FDA-Public Use
  Company Number: 2005110395

PATIENT
  Age: 3 Year
  Sex: Female

DRUGS (1)
  1. SOLU-CORTEF [Suspect]
     Indication: ASTHMA
     Dosage: 100 MG (100 MG , 1 IN 1 D), INTRAVENOUS
     Route: 042
     Dates: start: 20050729, end: 20050729

REACTIONS (2)
  - ANGIONEUROTIC OEDEMA [None]
  - INJURY [None]
